FAERS Safety Report 4845224-4 (Version None)
Quarter: 2005Q4

REPORT INFORMATION
  Report Type: 
  Country: None (occurrence: None)
  Receive Date: 20051129
  Receipt Date: 20051121
  Transmission Date: 20060501
  Serious: Yes (Death, Hospitalization, Other)
  Sender: FDA-Public Use
  Company Number: 200510486BNE

PATIENT
  Age: 75 Year
  Sex: Female

DRUGS (8)
  1. ASPIRIN [Suspect]
  2. LANSOPRAZOLE [Suspect]
  3. LISINOPRIL [Suspect]
  4. ATENOLOL [Suspect]
  5. GLYCERYL TRINITRATE [Suspect]
  6. FRUSEMIDE [Suspect]
  7. ATORVASTATIN CALCIUM [Suspect]
  8. NITROGLYCERIN [Concomitant]

REACTIONS (15)
  - ACUTE MYOCARDIAL INFARCTION [None]
  - COLON CANCER [None]
  - DELAYED RECOVERY FROM ANAESTHESIA [None]
  - GASTROINTESTINAL HAEMORRHAGE [None]
  - LARYNGEAL OEDEMA [None]
  - LARYNGOSPASM [None]
  - LOWER RESPIRATORY TRACT INFECTION [None]
  - NEUROMUSCULAR BLOCK PROLONGED [None]
  - NEUROMUSCULAR BLOCKADE [None]
  - OBSTRUCTIVE AIRWAYS DISORDER [None]
  - OVERDOSE [None]
  - POST PROCEDURAL COMPLICATION [None]
  - PULMONARY OEDEMA [None]
  - RESPIRATORY DISORDER [None]
  - STRIDOR [None]
